FAERS Safety Report 19439379 (Version 1)
Quarter: 2021Q2

REPORT INFORMATION
  Report Type: Spontaneous
  Country: US (occurrence: US)
  Receive Date: 20210619
  Receipt Date: 20210619
  Transmission Date: 20210717
  Serious: No
  Sender: FDA-Public Use
  Company Number: US-TAKEDA-2021TUS036536

PATIENT
  Sex: Female
  Weight: 77.1 kg

DRUGS (6)
  1. PENTASA [Suspect]
     Active Substance: MESALAMINE
     Indication: PRODUCT USED FOR UNKNOWN INDICATION
     Dosage: 4 DOSAGE FORM (TABLET), QD
     Route: 065
  2. URSODIOL. [Concomitant]
     Active Substance: URSODIOL
     Indication: PRODUCT USED FOR UNKNOWN INDICATION
  3. CREON [Concomitant]
     Active Substance: PANCRELIPASE AMYLASE\PANCRELIPASE LIPASE\PANCRELIPASE PROTEASE
     Indication: PRODUCT USED FOR UNKNOWN INDICATION
  4. PENTASA [Suspect]
     Active Substance: MESALAMINE
     Dosage: 3?6 TABLETS, QD
     Route: 065
  5. LIALDA [Suspect]
     Active Substance: MESALAMINE
     Indication: COLITIS ULCERATIVE
     Dosage: UNK
     Route: 065
  6. LIALDA [Suspect]
     Active Substance: MESALAMINE
     Indication: CROHN^S DISEASE

REACTIONS (3)
  - Gastrointestinal disorder [Unknown]
  - Nausea [Unknown]
  - Drug ineffective [Unknown]
